FAERS Safety Report 23882184 (Version 1)
Quarter: 2024Q2

REPORT INFORMATION
  Report Type: Spontaneous
  Country: IT (occurrence: IT)
  Receive Date: 20240521
  Receipt Date: 20240521
  Transmission Date: 20240716
  Serious: Yes (Hospitalization)
  Sender: FDA-Public Use
  Company Number: IT-NOVITIUMPHARMA-2024ITNVP00872

PATIENT
  Age: 58 Year

DRUGS (5)
  1. PREDNISONE [Suspect]
     Active Substance: PREDNISONE
     Indication: Non-Hodgkin^s lymphoma
  2. RITUXIMAB [Concomitant]
     Active Substance: RITUXIMAB
     Indication: Non-Hodgkin^s lymphoma
  3. CYCLOPHOSPHAMIDE [Concomitant]
     Active Substance: CYCLOPHOSPHAMIDE
     Indication: Non-Hodgkin^s lymphoma
  4. DOXORUBICIN [Concomitant]
     Active Substance: DOXORUBICIN
     Indication: Non-Hodgkin^s lymphoma
  5. VINCRISTINE [Concomitant]
     Active Substance: VINCRISTINE
     Indication: Non-Hodgkin^s lymphoma

REACTIONS (1)
  - COVID-19 [Recovered/Resolved]
